FAERS Safety Report 8862478 (Version 1)
Quarter: 2012Q4

REPORT INFORMATION
  Report Type: 
  Country: US (occurrence: US)
  Receive Date: 20121026
  Receipt Date: 20121026
  Transmission Date: 20130627
  Serious: No
  Sender: FDA-Public Use
  Company Number: US-ALLERGAN-1205296US

PATIENT
  Age: 69 Year
  Sex: Male

DRUGS (1)
  1. ALPHAGAN [Suspect]
     Indication: VISUAL DISTURBANCES
     Dosage: 1 drop to each eye 1 hour before driving, 2-3 times a week
     Route: 047

REACTIONS (2)
  - Abnormal sensation in eye [Unknown]
  - Parosmia [Unknown]
